FAERS Safety Report 8343715-5 (Version None)
Quarter: 2012Q2

REPORT INFORMATION
  Report Type: 
  Country: None (occurrence: None)
  Receive Date: 20120508
  Receipt Date: 20120501
  Transmission Date: 20120825
  Serious: Yes (Hospitalization, Other)
  Sender: FDA-Public Use
  Company Number: US-AMGEN-USASP2011066065

PATIENT
  Age: 74 Year
  Sex: Female
  Weight: 62.132 kg

DRUGS (5)
  1. SIMETHICONE [Concomitant]
     Dosage: 80 MG, UNK
  2. COUMADIN [Concomitant]
     Indication: ATRIAL FIBRILLATION
     Dosage: 4 MG, QHS
     Dates: start: 20120404
  3. HYDROCHLOROTHIAZIDE [Concomitant]
     Dosage: UNK
  4. BENGAY [Concomitant]
     Dosage: UNK UNK, PRN
     Route: 061
  5. ENBREL [Suspect]
     Indication: RHEUMATOID ARTHRITIS
     Dosage: 25 MG, 2 TIMES/WK
     Route: 058
     Dates: start: 20000201, end: 20120301

REACTIONS (16)
  - EAR PAIN [None]
  - SINUSITIS [None]
  - CEREBROVASCULAR ACCIDENT [None]
  - JOINT EFFUSION [None]
  - STAPHYLOCOCCAL BACTERAEMIA [None]
  - CARDIAC FAILURE CHRONIC [None]
  - SEASONAL ALLERGY [None]
  - FALL [None]
  - CARDIOMYOPATHY [None]
  - ENDOCARDITIS STAPHYLOCOCCAL [None]
  - ARTHRALGIA [None]
  - URINARY TRACT INFECTION [None]
  - SICK SINUS SYNDROME [None]
  - HYPONATRAEMIA [None]
  - ATRIAL FIBRILLATION [None]
  - HYPERTENSION [None]
